FAERS Safety Report 18481196 (Version 3)
Quarter: 2020Q4

REPORT INFORMATION
  Report Type: Spontaneous
  Country: US (occurrence: US)
  Receive Date: 20201109
  Receipt Date: 20201202
  Transmission Date: 20210114
  Serious: Yes (Death)
  Sender: FDA-Public Use
  Company Number: US-RARE DISEASE THERAPEUTICS, INC.-2093729

PATIENT
  Age: 67 Year
  Sex: Male
  Weight: 90 kg

DRUGS (37)
  1. VASOPRESSIN. [Concomitant]
     Active Substance: VASOPRESSIN
     Route: 042
  2. EPINEPHRINE. [Concomitant]
     Active Substance: EPINEPHRINE
     Route: 042
  3. DIPHENHYDRAMINE. [Concomitant]
     Active Substance: DIPHENHYDRAMINE
  4. ALBUMIN [Concomitant]
     Active Substance: ALBUMIN HUMAN
  5. CALCIUM GLUCONATE. [Concomitant]
     Active Substance: CALCIUM GLUCONATE
  6. KETAMINE [Concomitant]
     Active Substance: KETAMINE
     Route: 042
  7. PLASMALYTE [Concomitant]
     Active Substance: ELECTROLYTES NOS
     Route: 042
  8. HEPARIN [Concomitant]
     Active Substance: HEPARIN SODIUM
     Route: 042
  9. CISATRACURIUM. [Concomitant]
     Active Substance: CISATRACURIUM
     Route: 042
  10. PANTOPRAZOLE [Concomitant]
     Active Substance: PANTOPRAZOLE
  11. PIPERACILLIN AND TAZOBACTAM [Concomitant]
     Active Substance: PIPERACILLIN SODIUM\TAZOBACTAM SODIUM
  12. VANCOMYCIN [Concomitant]
     Active Substance: VANCOMYCIN
  13. CALCIUM CHLORIDE. [Concomitant]
     Active Substance: CALCIUM CHLORIDE
  14. METHYLENE BLUE. [Concomitant]
     Active Substance: METHYLENE BLUE
     Route: 042
  15. SODIUM CHLORIDE. [Concomitant]
     Active Substance: SODIUM CHLORIDE
  16. MIDAZOLAM. [Concomitant]
     Active Substance: MIDAZOLAM
     Route: 042
  17. HYDROCORTISONE. [Concomitant]
     Active Substance: HYDROCORTISONE
  18. THIAMINE. [Concomitant]
     Active Substance: THIAMINE
  19. FAMOTIDINE. [Concomitant]
     Active Substance: FAMOTIDINE
  20. CROFAB [Suspect]
     Active Substance: CROTALIDAE POLYVALENT IMMUNE FAB (OVINE)
     Route: 042
  21. DEXTROSE. [Concomitant]
     Active Substance: DEXTROSE
     Route: 042
  22. FENTANYL. [Concomitant]
     Active Substance: FENTANYL
     Route: 042
  23. INSULIN [Concomitant]
     Active Substance: INSULIN NOS
  24. CALCIUM [Concomitant]
     Active Substance: CALCIUM
  25. PRIMASOL CRRT [Concomitant]
     Route: 042
  26. CITRATE DEXTROSE [Concomitant]
  27. ANAVIP [Suspect]
     Active Substance: PIT VIPER (CROTALINAE) IMMUNE GLOBULIN ANTIVENIN (EQUINE)
     Indication: SNAKE BITE
     Route: 042
     Dates: start: 20201019, end: 20201020
  28. ACETAMINOPHEN. [Concomitant]
     Active Substance: ACETAMINOPHEN
     Route: 042
  29. FOLIC ACID. [Concomitant]
     Active Substance: FOLIC ACID
  30. LORAZEPAM. [Concomitant]
     Active Substance: LORAZEPAM
  31. VECURONIUM [Concomitant]
     Active Substance: VECURONIUM BROMIDE
  32. DEXAMETHASONE. [Concomitant]
     Active Substance: DEXAMETHASONE
  33. CHLORHEXIDINE [Concomitant]
     Active Substance: CHLORHEXIDINE
  34. NOREPINEPHRINE. [Concomitant]
     Active Substance: NOREPINEPHRINE
     Route: 042
  35. SODIUM BICARB [Concomitant]
     Active Substance: SODIUM BICARBONATE
     Route: 042
  36. ARGATROBAN. [Concomitant]
     Active Substance: ARGATROBAN
     Route: 042
  37. BACITRACIN OINTMENT [Concomitant]
     Active Substance: BACITRACIN
     Route: 061

REACTIONS (1)
  - Death [None]
